FAERS Safety Report 5413851-1 (Version None)
Quarter: 2007Q3

REPORT INFORMATION
  Report Type: 
  Country: None (occurrence: None)
  Receive Date: 20070814
  Receipt Date: 20070417
  Transmission Date: 20080115
  Serious: No
  Sender: FDA-Public Use
  Company Number: US-BRISTOL-MYERS SQUIBB COMPANY-13756093

PATIENT

DRUGS (3)
  1. REYATAZ [Suspect]
  2. TENOFOVIR [Interacting]
  3. ACETYLCYSTEINE [Concomitant]

REACTIONS (2)
  - DRUG INTERACTION [None]
  - DRUG LEVEL DECREASED [None]
